FAERS Safety Report 25203973 (Version 1)
Quarter: 2025Q2

REPORT INFORMATION
  Report Type: Spontaneous
  Country: US (occurrence: None)
  Receive Date: 20250416
  Receipt Date: 20250416
  Transmission Date: 20250716
  Serious: Yes (Hospitalization, Other)
  Sender: FDA-CTU
  Company Number: None

PATIENT
  Age: 82 Year
  Sex: Female
  Weight: 93.1 kg

DRUGS (2)
  1. LIBTAYO [Suspect]
     Active Substance: CEMIPLIMAB-RWLC
     Indication: Non-small cell lung cancer metastatic
     Route: 040
     Dates: start: 20250127, end: 20250127
  2. Non-contributory [Concomitant]

REACTIONS (8)
  - Rash [None]
  - Asthenia [None]
  - Cellulitis [None]
  - Peripheral swelling [None]
  - Stasis dermatitis [None]
  - Dermatitis [None]
  - Stevens-Johnson syndrome [None]
  - Serratia test positive [None]

NARRATIVE: CASE EVENT DATE: 20250210
